FAERS Safety Report 6121678-0 (Version None)
Quarter: 2009Q1

REPORT INFORMATION
  Report Type: 
  Country: None (occurrence: None)
  Receive Date: 20090317
  Receipt Date: 20090310
  Transmission Date: 20090719
  Serious: Yes (Other)
  Sender: FDA-Public Use
  Company Number: GB-JNJCH-2009006966

PATIENT
  Sex: Male

DRUGS (5)
  1. NICORETTE [Suspect]
     Indication: SMOKING CESSATION THERAPY
     Dosage: TEXT:UNSPECIFIED
     Route: 062
  2. NICORETTE [Suspect]
     Indication: SMOKING CESSATION THERAPY
     Dosage: TEXT:UNSPECIFIED
     Route: 055
  3. NICORETTE [Suspect]
     Indication: SMOKING CESSATION THERAPY
     Dosage: TEXT:UNSPECIFIED
     Route: 048
  4. NICOTINE [Suspect]
     Indication: SMOKING CESSATION THERAPY
     Dosage: TEXT:UNSPECIFIED
     Route: 048
  5. DRUG, UNSPECIFIED [Concomitant]
     Indication: DRUG USE FOR UNKNOWN INDICATION
     Dosage: TEXT:UNSPECIFIED
     Route: 065

REACTIONS (3)
  - APPLICATION SITE PRURITUS [None]
  - CHRONIC OBSTRUCTIVE PULMONARY DISEASE [None]
  - DRUG INEFFECTIVE [None]
